FAERS Safety Report 6842259-7 (Version None)
Quarter: 2010Q3

REPORT INFORMATION
  Report Type: 
  Country: None (occurrence: None)
  Receive Date: 20100714
  Receipt Date: 20070724
  Transmission Date: 20110219
  Serious: No
  Sender: FDA-Public Use
  Company Number: US-PFIZER INC-2007063408

PATIENT
  Sex: Female
  Weight: 51.3 kg

DRUGS (7)
  1. CHANTIX [Suspect]
     Indication: SMOKING CESSATION THERAPY
     Dates: start: 20070721
  2. OXYCONTIN [Concomitant]
  3. OXYCODONE HCL [Concomitant]
  4. SOMA [Concomitant]
  5. VALIUM [Concomitant]
  6. NEXIUM [Concomitant]
  7. OTHER HYPNOTICS AND SEDATIVES [Concomitant]
     Indication: SLEEP DISORDER

REACTIONS (1)
  - SKIN BURNING SENSATION [None]
